FAERS Safety Report 22912495 (Version 2)
Quarter: 2023Q4

REPORT INFORMATION
  Report Type: Spontaneous
  Country: US (occurrence: US)
  Receive Date: 20230906
  Receipt Date: 20231108
  Transmission Date: 20240110
  Serious: Yes (Hospitalization, Other)
  Sender: FDA-Public Use
  Company Number: US-GLENMARK PHARMACEUTICALS-2023GMK084673

PATIENT

DRUGS (1)
  1. OLMESARTAN MEDOXOMIL [Suspect]
     Active Substance: OLMESARTAN MEDOXOMIL
     Indication: Product used for unknown indication
     Dosage: 1 DOSAGE FORM, OD
     Route: 048
     Dates: start: 20230623

REACTIONS (9)
  - Gout [Unknown]
  - Pain in extremity [Unknown]
  - Weight decreased [Unknown]
  - Dehydration [Unknown]
  - Illness [Unknown]
  - Lethargy [Unknown]
  - Diarrhoea [Unknown]
  - Acute kidney injury [Unknown]
  - Product quality issue [Unknown]

NARRATIVE: CASE EVENT DATE: 20230726
